FAERS Safety Report 8028978-8 (Version None)
Quarter: 2012Q1

REPORT INFORMATION
  Report Type: 
  Country: None (occurrence: None)
  Receive Date: 20120106
  Receipt Date: 20111226
  Transmission Date: 20120608
  Serious: Yes (Other)
  Sender: FDA-Public Use
  Company Number: JP-ELI_LILLY_AND_COMPANY-JP201106007312

PATIENT
  Age: 71 Year
  Sex: Male

DRUGS (2)
  1. GEMZAR [Suspect]
     Indication: BILE DUCT CANCER
     Dosage: 1000 MG/M2, OTHER
     Route: 042
     Dates: start: 20060701
  2. GEMZAR [Suspect]
     Dosage: 800 MG/M2, OTHER
     Route: 042
     Dates: end: 20070801

REACTIONS (2)
  - DECREASED APPETITE [None]
  - NEOPLASM PROGRESSION [None]
